FAERS Safety Report 6133387-2 (Version None)
Quarter: 2009Q1

REPORT INFORMATION
  Report Type: 
  Country: None (occurrence: None)
  Receive Date: 20090326
  Receipt Date: 20090317
  Transmission Date: 20090719
  Serious: Yes (Hospitalization)
  Sender: FDA-Public Use
  Company Number: PHHY2009JP10279

PATIENT
  Sex: Male
  Weight: 63 kg

DRUGS (23)
  1. NEORAL [Suspect]
     Indication: MYASTHENIA GRAVIS
     Dosage: 200 MG DAILY
     Route: 048
     Dates: start: 20071116, end: 20071129
  2. NEORAL [Suspect]
     Dosage: 100 MG DAILY
     Route: 048
     Dates: start: 20071130, end: 20071214
  3. NEORAL [Suspect]
     Dosage: 50 MG DAILY
     Route: 048
     Dates: start: 20071215, end: 20080417
  4. NEORAL [Suspect]
     Dosage: 50 MG DAILY
     Route: 048
     Dates: start: 20080426, end: 20081011
  5. NEORAL [Suspect]
     Dosage: 50 MG DAILY
     Route: 048
     Dates: start: 20081019, end: 20081027
  6. NEORAL [Suspect]
     Dosage: 50 MG DAILY
     Route: 048
     Dates: start: 20081031
  7. PREDNISOLONE [Suspect]
     Indication: MYASTHENIA GRAVIS
     Dosage: 30 MG
     Route: 048
     Dates: start: 20060330, end: 20081011
  8. PREDNISOLONE [Suspect]
     Dosage: 30 MG
     Route: 048
     Dates: start: 20081019, end: 20081027
  9. PREDNISOLONE [Suspect]
     Dosage: 30 MG
     Route: 048
     Dates: start: 20081031
  10. PREDONINE [Concomitant]
     Indication: MYASTHENIA GRAVIS
     Dosage: 50 MG
     Route: 042
     Dates: start: 20081011, end: 20081030
  11. PREDONINE [Concomitant]
     Dosage: 40 MG
     Route: 042
     Dates: start: 20081011, end: 20081030
  12. PROGRAF [Concomitant]
     Indication: MYASTHENIA GRAVIS
     Dosage: 1 MG
     Route: 048
     Dates: start: 20071109, end: 20071112
  13. MESTINON [Concomitant]
     Indication: MYASTHENIA GRAVIS
     Dosage: 180 MG
     Route: 048
     Dates: start: 20030826
  14. MUCODYNE [Concomitant]
     Indication: BRONCHITIS CHRONIC
     Dosage: 1500 MG
     Route: 048
     Dates: start: 20030603, end: 20081027
  15. MUCODYNE [Concomitant]
     Dosage: 1500 MG
     Route: 048
     Dates: start: 20030603, end: 20081027
  16. BASEN OD [Concomitant]
     Indication: DIABETES MELLITUS
     Dosage: 0.9 MG
     Route: 048
     Dates: start: 20050805, end: 20081011
  17. ZANTAC [Concomitant]
     Indication: GASTRIC ULCER
     Dosage: 300 MG
     Route: 048
     Dates: start: 20040406
  18. ZANTAC [Concomitant]
     Dosage: 300 MG
     Dates: start: 20040406
  19. ZANTAC [Concomitant]
     Dosage: 300 MG
     Route: 048
     Dates: start: 20040406
  20. MUCOSTA [Concomitant]
     Indication: GASTRITIS
     Dosage: 300 MG
     Route: 048
     Dates: start: 20050819, end: 20081027
  21. MUCOSTA [Concomitant]
     Dosage: 300 MG
     Route: 048
     Dates: start: 20050819, end: 20081027
  22. ROCALTROL [Concomitant]
     Indication: OSTEOPOROSIS
     Dosage: 0.5 MCG
     Route: 048
     Dates: start: 20010828, end: 20081027
  23. ROCALTROL [Concomitant]
     Dosage: 0.5 MCG
     Route: 048
     Dates: start: 20010828, end: 20081027

REACTIONS (18)
  - ABDOMINAL PAIN UPPER [None]
  - ALTERED STATE OF CONSCIOUSNESS [None]
  - ASTHENIA [None]
  - BLOOD PRESSURE INCREASED [None]
  - ENCEPHALITIS [None]
  - GASTROINTESTINAL TUBE INSERTION [None]
  - HERPES ZOSTER [None]
  - ILEUS [None]
  - IMMOBILE [None]
  - MALAISE [None]
  - MUSCULOSKELETAL DISCOMFORT [None]
  - MUSCULOSKELETAL PAIN [None]
  - MYOSITIS [None]
  - NUCHAL RIGIDITY [None]
  - PYREXIA [None]
  - RASH [None]
  - SYSTEMIC INFLAMMATORY RESPONSE SYNDROME [None]
  - VOMITING [None]
